FAERS Safety Report 10459547 (Version 6)
Quarter: 2015Q2

REPORT INFORMATION
  Report Type: Spontaneous
  Country: US (occurrence: US)
  Receive Date: 20140917
  Receipt Date: 20150430
  Transmission Date: 20150821
  Serious: Yes (Hospitalization, Other)
  Sender: FDA-Public Use
  Company Number: US-009507513-1409USA007650

PATIENT
  Sex: Male
  Weight: 102.2 kg

DRUGS (4)
  1. BYETTA [Suspect]
     Active Substance: EXENATIDE
     Indication: TYPE 2 DIABETES MELLITUS
     Dosage: 5 MICROGRAM, QD
     Dates: start: 201104, end: 201203
  2. LYRICA [Concomitant]
     Active Substance: PREGABALIN
     Dosage: 50-75 MG TID
     Dates: start: 20070709
  3. JANUVIA [Suspect]
     Active Substance: SITAGLIPTIN PHOSPHATE
     Indication: TYPE 2 DIABETES MELLITUS
     Dosage: 100 MG, QAM
     Route: 048
     Dates: start: 20071101, end: 20080108
  4. GLUCOVANCE [Concomitant]
     Active Substance: GLYBURIDE\METFORMIN HYDROCHLORIDE
     Dosage: 5/500 MG BID-TID
     Dates: start: 20070709

REACTIONS (19)
  - Encephalopathy [Unknown]
  - Cervical spinal stenosis [Unknown]
  - Urinary retention [Recovered/Resolved]
  - Pancreatic neuroendocrine tumour [Unknown]
  - Intervertebral disc degeneration [Unknown]
  - Hepatitis C [Unknown]
  - Onychomycosis [Unknown]
  - Coronary angioplasty [Unknown]
  - Delirium [Recovering/Resolving]
  - Dysphoria [Unknown]
  - Pancreatectomy [Unknown]
  - Pneumonia [Unknown]
  - Lung disorder [Unknown]
  - Peripheral vascular disorder [Unknown]
  - White blood cell count increased [Recovering/Resolving]
  - Coronary artery disease [Unknown]
  - Haemorrhagic anaemia [Unknown]
  - Accident [Unknown]
  - Atrial fibrillation [Unknown]

NARRATIVE: CASE EVENT DATE: 2008
